FAERS Safety Report 6127188-9 (Version None)
Quarter: 2009Q1

REPORT INFORMATION
  Report Type: 
  Country: None (occurrence: None)
  Receive Date: 20090320
  Receipt Date: 20090309
  Transmission Date: 20090719
  Serious: Yes (Death, Other)
  Sender: FDA-Public Use
  Company Number: US-BAXTER-2009BH001415

PATIENT
  Sex: Female

DRUGS (1)
  1. HEPARIN [Suspect]
     Indication: THROMBOSIS PROPHYLAXIS
     Route: 065
     Dates: start: 20080124, end: 20080124

REACTIONS (4)
  - ARRHYTHMIA [None]
  - BLOOD PRESSURE DECREASED [None]
  - DEATH [None]
  - HYPOTENSION [None]
